FAERS Safety Report 8776354 (Version 8)
Quarter: 2015Q2

REPORT INFORMATION
  Report Type: Report from Study
  Country: DE (occurrence: DE)
  Receive Date: 20120910
  Receipt Date: 20150619
  Transmission Date: 20150821
  Serious: Yes (Death, Other)
  Sender: FDA-Public Use
  Company Number: DE-ROCHE-1114844

PATIENT

DRUGS (7)
  1. IRINOTECAN [Suspect]
     Active Substance: IRINOTECAN
     Indication: COLORECTAL CANCER METASTATIC
     Route: 042
  2. BEVACIZUMAB [Suspect]
     Active Substance: BEVACIZUMAB
     Route: 042
  3. BEVACIZUMAB [Suspect]
     Active Substance: BEVACIZUMAB
     Route: 042
  4. FLUOROURACIL. [Suspect]
     Active Substance: FLUOROURACIL
     Route: 041
  5. FOLINIC ACID [Suspect]
     Active Substance: LEUCOVORIN
     Indication: COLORECTAL CANCER METASTATIC
     Route: 042
  6. BEVACIZUMAB [Suspect]
     Active Substance: BEVACIZUMAB
     Indication: COLORECTAL CANCER METASTATIC
     Dosage: OVER 90 MIN
     Route: 042
  7. FLUOROURACIL. [Suspect]
     Active Substance: FLUOROURACIL
     Indication: COLORECTAL CANCER METASTATIC
     Route: 040

REACTIONS (36)
  - Hepatotoxicity [Unknown]
  - Arrhythmia [Fatal]
  - Neutropenia [Unknown]
  - Constipation [Unknown]
  - Pulmonary embolism [Unknown]
  - Hypertonia [Unknown]
  - Weight decreased [Unknown]
  - Neutropenic infection [Fatal]
  - Hypertension [Unknown]
  - Diarrhoea [Unknown]
  - Stomatitis [Unknown]
  - Pain [Unknown]
  - Hypokalaemia [Unknown]
  - Hypocalcaemia [Unknown]
  - Thrombosis [Unknown]
  - Leukopenia [Unknown]
  - Deep vein thrombosis [Unknown]
  - Hypomagnesaemia [Unknown]
  - Polyneuropathy [Unknown]
  - Oedema [Unknown]
  - Nephropathy toxic [Unknown]
  - Decreased appetite [Unknown]
  - Haemorrhage [Unknown]
  - Embolism [Unknown]
  - Syncope [Unknown]
  - Nausea [Unknown]
  - Fatigue [Unknown]
  - Pyrexia [Unknown]
  - Hyperglycaemia [Unknown]
  - Anaemia [Unknown]
  - Infection [Unknown]
  - Alopecia [Unknown]
  - Skin exfoliation [Unknown]
  - Palmar-plantar erythrodysaesthesia syndrome [Unknown]
  - Vomiting [Unknown]
  - Dyspnoea [Unknown]
